FAERS Safety Report 10568646 (Version 1)
Quarter: 2014Q4

REPORT INFORMATION
  Report Type: Spontaneous
  Country: US (occurrence: US)
  Receive Date: 20141106
  Receipt Date: 20141106
  Transmission Date: 20150529
  Serious: No
  Sender: FDA-Public Use
  Company Number: US-GLAXOSMITHKLINE-US2014GSK017185

PATIENT
  Sex: Male

DRUGS (1)
  1. MUPIROCIN CALCIUM CREAM [Suspect]
     Active Substance: MUPIROCIN CALCIUM
     Indication: SINUSITIS
     Dosage: UNK

REACTIONS (1)
  - Anosmia [Unknown]
